FAERS Safety Report 21917171 (Version 2)
Quarter: 2023Q1

REPORT INFORMATION
  Report Type: Spontaneous
  Country: IT (occurrence: IT)
  Receive Date: 20230126
  Receipt Date: 20230209
  Transmission Date: 20230418
  Serious: Yes (Hospitalization, Other)
  Sender: FDA-Public Use
  Company Number: IT-009507513-2301ITA007047

PATIENT
  Sex: Female

DRUGS (4)
  1. KEYTRUDA [Suspect]
     Active Substance: PEMBROLIZUMAB
     Indication: Breast cancer
     Route: 042
  2. CYCLOPHOSPHAMIDE [Suspect]
     Active Substance: CYCLOPHOSPHAMIDE
     Indication: Breast cancer
     Dosage: 984 MILLIGRAM, Q3W
     Route: 042
     Dates: start: 20220930
  3. EPIRUBICIN [Suspect]
     Active Substance: EPIRUBICIN
     Indication: Breast cancer
     Route: 042
     Dates: start: 20220930
  4. PANTOPRAZOLE SODIUM [Concomitant]
     Active Substance: PANTOPRAZOLE SODIUM
     Indication: Antacid therapy
     Dosage: 20 MILLIGRAM, QD
     Route: 048
     Dates: start: 20221216

REACTIONS (2)
  - Abdominal pain upper [Unknown]
  - Pyrexia [Recovered/Resolved]

NARRATIVE: CASE EVENT DATE: 20221201
